FAERS Safety Report 4929062-X (Version None)
Quarter: 2006Q1

REPORT INFORMATION
  Report Type: 
  Country: None (occurrence: None)
  Receive Date: 20060228
  Receipt Date: 20060228
  Transmission Date: 20060701
  Serious: Yes (Hospitalization)
  Sender: FDA-Public Use
  Company Number: None

PATIENT
  Sex: Female
  Weight: 86.1834 kg

DRUGS (6)
  1. IMODIUM AD [Suspect]
     Indication: DIARRHOEA
     Dosage: 2 MG   2X2MG AND 1X2MG  PO
     Route: 048
     Dates: start: 20060222, end: 20060222
  2. OMEPRAZOLE [Concomitant]
  3. LISINOPRIL [Concomitant]
  4. HYDROCHLOROTHIAZIDE [Concomitant]
  5. INDEROL [Concomitant]
  6. POTASSIUM CHLORIDE [Concomitant]

REACTIONS (1)
  - URTICARIA [None]
